FAERS Safety Report 8313719-7 (Version None)
Quarter: 2012Q2

REPORT INFORMATION
  Report Type: 
  Country: None (occurrence: None)
  Receive Date: 20120426
  Receipt Date: 20120420
  Transmission Date: 20120825
  Serious: Yes (Hospitalization, Other)
  Sender: FDA-Public Use
  Company Number: PHHY2012MX034218

PATIENT
  Sex: Male

DRUGS (4)
  1. RASILEZ [Suspect]
     Indication: HYPERTENSION
     Dosage: 1 DF/DAY
     Route: 048
  2. EXFORGE HCT [Concomitant]
     Indication: HYPERTENSION
     Dosage: 1 DF, PER DAY
  3. GALVUS [Concomitant]
     Indication: DIABETES MELLITUS
     Dosage: 2 DF, PER DAY
  4. DIOVAN [Concomitant]
     Indication: HYPERTENSION
     Dosage: 1 DF, PER DAY

REACTIONS (1)
  - RENAL FAILURE [None]
